APPROVED DRUG PRODUCT: HYDRALAZINE HYDROCHLORIDE
Active Ingredient: HYDRALAZINE HYDROCHLORIDE
Strength: 25MG
Dosage Form/Route: TABLET;ORAL
Application: A085532 | Product #002
Applicant: WATSON LABORATORIES INC
Approved: May 24, 1982 | RLD: No | RS: No | Type: DISCN